FAERS Safety Report 8539797-8 (Version None)
Quarter: 2012Q3

REPORT INFORMATION
  Report Type: 
  Country: None (occurrence: None)
  Receive Date: 20120726
  Receipt Date: 20120717
  Transmission Date: 20120928
  Serious: Yes (Other)
  Sender: FDA-Public Use
  Company Number: DE-ASTRAZENECA-2012SE33677

PATIENT
  Sex: Male
  Weight: 95 kg

DRUGS (1)
  1. NEXIUM [Suspect]
     Indication: GASTROOESOPHAGEAL REFLUX DISEASE
     Route: 048
     Dates: end: 20120101

REACTIONS (2)
  - HEPATITIS B DNA INCREASED [None]
  - LIVER FUNCTION TEST ABNORMAL [None]
